FAERS Safety Report 25466623 (Version 2)
Quarter: 2025Q3

REPORT INFORMATION
  Report Type: Spontaneous
  Country: TW (occurrence: TW)
  Receive Date: 20250623
  Receipt Date: 20250803
  Transmission Date: 20251020
  Serious: Yes (Other)
  Sender: ALEXION PHARMACEUTICALS
  Company Number: TW-ASTRAZENECA-202506ASI014003TW

PATIENT
  Age: 76 Year
  Sex: Female
  Weight: 34.7 kg

DRUGS (6)
  1. DAPAGLIFLOZIN [Suspect]
     Active Substance: DAPAGLIFLOZIN
     Indication: Chronic kidney disease
     Dosage: 10 MILLIGRAM, QD
     Dates: start: 20240808, end: 20250522
  2. DAPAGLIFLOZIN [Suspect]
     Active Substance: DAPAGLIFLOZIN
     Indication: Proteinuria
  3. DIOVAN [Suspect]
     Active Substance: VALSARTAN
     Indication: Hypertension
     Dosage: 80 MILLIGRAM, QD
     Dates: start: 20221101, end: 20250529
  4. DIOVAN [Suspect]
     Active Substance: VALSARTAN
     Indication: Coronary artery disease
  5. NORVASC [Concomitant]
     Active Substance: AMLODIPINE BESYLATE
     Dosage: 5 MILLIGRAM, QD
     Dates: start: 20231101, end: 20250529
  6. BISOPROLOL FUMARATE [Concomitant]
     Active Substance: BISOPROLOL FUMARATE
     Dosage: 2.5 MILLIGRAM, QD
     Dates: start: 20231101, end: 20250529

REACTIONS (6)
  - Acute kidney injury [Recovering/Resolving]
  - Renal cyst [Unknown]
  - Adrenal adenoma [Recovered/Resolved]
  - Hyperkalaemia [Recovering/Resolving]
  - Urine output decreased [Unknown]
  - Oedema peripheral [Unknown]

NARRATIVE: CASE EVENT DATE: 20250122
